FAERS Safety Report 7060531-5 (Version None)
Quarter: 2010Q4

REPORT INFORMATION
  Report Type: 
  Country: None (occurrence: None)
  Receive Date: 20101025
  Receipt Date: 20101012
  Transmission Date: 20110411
  Serious: Yes (Hospitalization, Other)
  Sender: FDA-Public Use
  Company Number: US-ELI_LILLY_AND_COMPANY-US201010002999

PATIENT
  Sex: Female

DRUGS (4)
  1. FORTEO [Suspect]
     Indication: OSTEOPOROSIS
     Dosage: 20 UG, DAILY (1/D)
     Route: 065
     Dates: start: 20100701
  2. VITAMINS [Concomitant]
     Dosage: UNK, UNKNOWN
     Route: 065
  3. CALCIUM [Concomitant]
     Dosage: UNK, WEEKLY (1/W)
     Route: 065
  4. DARVOCET [Concomitant]
     Indication: PAIN
     Dosage: UNK, AS NEEDED
     Route: 065

REACTIONS (4)
  - ASTHENIA [None]
  - CORONARY ARTERY OCCLUSION [None]
  - DISORIENTATION [None]
  - PERICARDIAL EFFUSION [None]
